FAERS Safety Report 4675740-X (Version None)
Quarter: 2005Q2

REPORT INFORMATION
  Report Type: 
  Country: None (occurrence: None)
  Receive Date: 20050527
  Receipt Date: 20050309
  Transmission Date: 20051028
  Serious: Yes (Other)
  Sender: FDA-Public Use
  Company Number: US-BRISTOL-MYERS SQUIBB COMPANY-12892055

PATIENT
  Sex: Male

DRUGS (8)
  1. ERBITUX [Suspect]
     Indication: COLORECTAL CANCER STAGE IV
     Route: 042
     Dates: start: 20050302
  2. BENADRYL [Concomitant]
     Indication: PREMEDICATION
     Route: 042
     Dates: start: 20050302
  3. DEXAMETHASONE [Concomitant]
     Indication: PREMEDICATION
     Route: 048
     Dates: start: 20050302
  4. KYTRIL [Concomitant]
     Indication: PREMEDICATION
     Route: 042
     Dates: start: 20050302
  5. FLUOROURACIL [Concomitant]
  6. LEUCOVORIN CALCIUM [Concomitant]
  7. PREDNISONE [Concomitant]
  8. TOPROL-XL [Concomitant]

REACTIONS (2)
  - MUSCLE SPASMS [None]
  - RASH [None]
